FAERS Safety Report 7762315 (Version 4)
Quarter: 2013Q4

REPORT INFORMATION
  Report Type: Spontaneous
  Country: US (occurrence: US)
  Receive Date: 20110117
  Receipt Date: 20131209
  Transmission Date: 20140711
  Serious: Yes (Hospitalization, Other)
  Sender: FDA-Public Use
  Company Number: US-BAYER-2011-004505

PATIENT
  Age: 20 Year
  Sex: Female
  Weight: 75 kg

DRUGS (5)
  1. YASMIN [Suspect]
     Indication: CONTRACEPTION
     Dosage: UNK
     Dates: start: 2002, end: 2009
  2. YASMIN [Suspect]
     Indication: OLIGOMENORRHOEA
  3. OCELLA [Suspect]
     Indication: CONTRACEPTION
     Dosage: UNK
     Dates: start: 2009, end: 201003
  4. OCELLA [Suspect]
     Indication: OLIGOMENORRHOEA
  5. PAXIL [Concomitant]
     Indication: ANXIETY
     Dosage: UNK
     Dates: start: 2005, end: 2008

REACTIONS (2)
  - Gallbladder disorder [None]
  - Cholecystitis chronic [None]
